FAERS Safety Report 10156729 (Version 1)
Quarter: 2014Q2

REPORT INFORMATION
  Report Type: Spontaneous
  Country: US (occurrence: None)
  Receive Date: 20140506
  Receipt Date: 20140506
  Transmission Date: 20141212
  Serious: No
  Sender: FDA-Public Use
  Company Number: None

PATIENT
  Sex: Female

DRUGS (1)
  1. XTANDI  40MG [Suspect]
     Dosage: LESS THAN ONE MONTH, 80MG, QD, PO
     Route: 048

REACTIONS (4)
  - Convulsion [None]
  - Diarrhoea [None]
  - Platelet count decreased [None]
  - Body temperature increased [None]
